FAERS Safety Report 8542651-9 (Version None)
Quarter: 2012Q3

REPORT INFORMATION
  Report Type: 
  Country: None (occurrence: None)
  Receive Date: 20120727
  Receipt Date: 20120717
  Transmission Date: 20120928
  Serious: Yes (Other)
  Sender: FDA-Public Use
  Company Number: AR-AMGEN-ARGSP2012045673

PATIENT
  Age: 63 Year
  Sex: Female

DRUGS (3)
  1. ENBREL [Suspect]
     Indication: RHEUMATOID ARTHRITIS
     Dosage: 50 MG, EVERY 15 DAYS
     Route: 058
     Dates: start: 20110601
  2. NAPROXEN [Concomitant]
     Dosage: UNK
     Route: 048
  3. PREDNISONE [Concomitant]
     Dosage: UNK
     Route: 048

REACTIONS (2)
  - IMMUNE SYSTEM DISORDER [None]
  - DEVICE RELATED INFECTION [None]
